FAERS Safety Report 6888378-0 (Version None)
Quarter: 2010Q3

REPORT INFORMATION
  Report Type: 
  Country: None (occurrence: None)
  Receive Date: 20100730
  Receipt Date: 20100719
  Transmission Date: 20110219
  Serious: Yes (Death)
  Sender: FDA-Public Use
  Company Number: DE-GENENTECH-304552

PATIENT
  Sex: Male
  Weight: 65 kg

DRUGS (1)
  1. RITUXIMAB [Suspect]
     Indication: MANTLE CELL LYMPHOMA
     Dosage: 600 MG, UNK
     Route: 042
     Dates: start: 20100225, end: 20100225

REACTIONS (1)
  - DEATH [None]
